FAERS Safety Report 4357207-1 (Version None)
Quarter: 2004Q2

REPORT INFORMATION
  Report Type: 
  Country: None (occurrence: None)
  Receive Date: 20040512
  Receipt Date: 20040512
  Transmission Date: 20050107
  Serious: Yes (Death)
  Sender: FDA-Public Use
  Company Number: None

PATIENT
  Age: 14 Year
  Sex: Male
  Weight: 45.3597 kg

DRUGS (2)
  1. REMERON [Suspect]
     Indication: ANXIETY
     Dosage: 45 MG 1XPER DAY ORAL
     Route: 048
     Dates: start: 20010801, end: 20011010
  2. REMERON [Suspect]
     Indication: DEPRESSION
     Dosage: 45 MG 1XPER DAY ORAL
     Route: 048
     Dates: start: 20010801, end: 20011010

REACTIONS (1)
  - MEDICATION ERROR [None]
